FAERS Safety Report 19881099 (Version 1)
Quarter: 2021Q3

REPORT INFORMATION
  Report Type: Spontaneous
  Country: RO (occurrence: RO)
  Receive Date: 20210925
  Receipt Date: 20210925
  Transmission Date: 20211014
  Serious: Yes (Other)
  Sender: FDA-Public Use
  Company Number: RO-ROCHE-2916415

PATIENT
  Age: 68 Year
  Sex: Male

DRUGS (4)
  1. TECENTRIQ [Suspect]
     Active Substance: ATEZOLIZUMAB
     Indication: PRODUCT USED FOR UNKNOWN INDICATION
     Route: 041
     Dates: start: 202002, end: 202103
  2. BEVACIZUMAB. [Concomitant]
     Active Substance: BEVACIZUMAB
  3. TECENTRIQ [Suspect]
     Active Substance: ATEZOLIZUMAB
     Dosage: 7 CYCLES
     Route: 065
     Dates: start: 202103, end: 202109
  4. PACLITAXEL. [Concomitant]
     Active Substance: PACLITAXEL

REACTIONS (4)
  - Aspiration pleural cavity [Unknown]
  - Anaemia [Unknown]
  - Infectious pleural effusion [Unknown]
  - Red blood cell sedimentation rate increased [Unknown]
